FAERS Safety Report 17572193 (Version 4)
Quarter: 2020Q2

REPORT INFORMATION
  Report Type: Spontaneous
  Country: US (occurrence: US)
  Receive Date: 20200323
  Receipt Date: 20200513
  Transmission Date: 20200713
  Serious: Yes (Other)
  Sender: FDA-Public Use
  Company Number: US-AKORN PHARMACEUTICALS-2020AKN00369

PATIENT
  Sex: Female
  Weight: 72.56 kg

DRUGS (2)
  1. MYORISAN [Suspect]
     Active Substance: ISOTRETINOIN
     Indication: ACNE
     Dosage: 40 MG, 2X/DAY
     Route: 048
     Dates: start: 20200204, end: 20200310
  2. MYORISAN [Suspect]
     Active Substance: ISOTRETINOIN
     Indication: ACNE
     Dosage: 30 MG, 2X/DAY
     Route: 048
     Dates: start: 20191203, end: 20200203

REACTIONS (2)
  - Self-injurious ideation [Unknown]
  - Depression [Unknown]

NARRATIVE: CASE EVENT DATE: 2020
